FAERS Safety Report 19632505 (Version 2)
Quarter: 2022Q2

REPORT INFORMATION
  Report Type: Spontaneous
  Country: US (occurrence: None)
  Receive Date: 20210728
  Receipt Date: 20220621
  Transmission Date: 20220720
  Serious: No
  Sender: FDA-Public Use
  Company Number: US-ROCHE-2662423

PATIENT
  Age: 57 Year
  Sex: Female

DRUGS (2)
  1. XELODA [Suspect]
     Active Substance: CAPECITABINE
     Indication: Product used for unknown indication
     Route: 065
  2. TUCATINIB [Suspect]
     Active Substance: TUCATINIB
     Indication: Product used for unknown indication
     Route: 065

REACTIONS (14)
  - Palmar-plantar erythrodysaesthesia syndrome [Unknown]
  - Weight increased [Unknown]
  - Psychomotor hyperactivity [Unknown]
  - Obsessive thoughts [Unknown]
  - Stress [Unknown]
  - Mood swings [Unknown]
  - Anxiety [Unknown]
  - Behaviour disorder [Unknown]
  - Compulsions [Unknown]
  - Joint injury [Unknown]
  - Depression [Unknown]
  - Illness [Unknown]
  - Laryngitis [Unknown]
  - Pain [Unknown]

NARRATIVE: CASE EVENT DATE: 20200721
